FAERS Safety Report 7859219-X (Version None)
Quarter: 2011Q4

REPORT INFORMATION
  Report Type: 
  Country: None (occurrence: None)
  Receive Date: 20111027
  Receipt Date: 20111027
  Transmission Date: 20120403
  Serious: Yes (Hospitalization, Other)
  Sender: FDA-Public Use
  Company Number: None

PATIENT
  Age: 29 Year
  Sex: Female
  Weight: 90.718 kg

DRUGS (1)
  1. GEODON [Suspect]
     Dosage: 40MG
     Route: 048
     Dates: start: 20101006, end: 20101014

REACTIONS (2)
  - FEELING ABNORMAL [None]
  - CONVULSION [None]
